FAERS Safety Report 20354683 (Version 1)
Quarter: 2022Q1

REPORT INFORMATION
  Report Type: Spontaneous
  Country: FR (occurrence: FR)
  Receive Date: 20220120
  Receipt Date: 20220120
  Transmission Date: 20220423
  Serious: Yes (Hospitalization)
  Sender: FDA-Public Use
  Company Number: None

PATIENT
  Age: 48 Year
  Sex: Female
  Weight: 80 kg

DRUGS (7)
  1. METHOTREXATE [Suspect]
     Active Substance: METHOTREXATE
     Indication: Colitis
     Dosage: 50 MG, QD (MAUVAISE OBSERVANCE. P?RIODES D^ARR?T)
     Route: 048
     Dates: start: 20211106
  2. INFLIXIMAB [Suspect]
     Active Substance: INFLIXIMAB
     Indication: Colitis
     Dosage: 5 MG/KG
     Route: 041
     Dates: start: 20210320, end: 20210407
  3. INFLIXIMAB [Suspect]
     Active Substance: INFLIXIMAB
     Dosage: 5 MG/KG
     Route: 041
     Dates: start: 20210514, end: 20210514
  4. INFLIXIMAB [Suspect]
     Active Substance: INFLIXIMAB
     Dosage: 10 MG/KG
     Route: 041
     Dates: start: 20210611, end: 20211006
  5. INFLIXIMAB [Suspect]
     Active Substance: INFLIXIMAB
     Dosage: 10 MG/KG, Q4W
     Route: 041
     Dates: start: 20211105, end: 20211201
  6. NEO-MERCAZOLE [Suspect]
     Active Substance: CARBIMAZOLE
     Indication: Basedow^s disease
     Dosage: 50 MG, QD (MAUVAISE OBSERVANCE. P?RIODES D^ARR?T)
     Route: 048
     Dates: start: 20210317
  7. AZATHIOPRINE SODIUM [Suspect]
     Active Substance: AZATHIOPRINE SODIUM
     Indication: Colitis
     Dosage: 50 MG, QD (MAUVAISE OBSERVANCE. P?RIODES D^ARR?T)
     Route: 048
     Dates: start: 20210320, end: 20211105

REACTIONS (1)
  - Hepatic cytolysis [Not Recovered/Not Resolved]

NARRATIVE: CASE EVENT DATE: 20211230
